FAERS Safety Report 9540640 (Version 1)
Quarter: 2013Q3

REPORT INFORMATION
  Report Type: Spontaneous
  Country: US (occurrence: US)
  Receive Date: 20130920
  Receipt Date: 20130920
  Transmission Date: 20140515
  Serious: Yes (Other)
  Sender: FDA-Public Use
  Company Number: CHPA2013US014125

PATIENT
  Age: 67 Year
  Sex: Male

DRUGS (2)
  1. VOLTAREN GEL [Suspect]
     Indication: MUSCLE STRAIN
     Dosage: 4 G, QID
     Route: 061
     Dates: start: 201306
  2. VOLTAREN GEL [Suspect]
     Indication: PAIN IN EXTREMITY

REACTIONS (4)
  - Precancerous skin lesion [Not Recovered/Not Resolved]
  - Drug administered at inappropriate site [Unknown]
  - Drug ineffective for unapproved indication [Unknown]
  - Therapeutic response unexpected [Unknown]
